FAERS Safety Report 24310129 (Version 1)
Quarter: 2024Q3

REPORT INFORMATION
  Report Type: Spontaneous
  Country: PT (occurrence: PT)
  Receive Date: 20240912
  Receipt Date: 20240912
  Transmission Date: 20241016
  Serious: Yes (Hospitalization, Other)
  Sender: ROCHE
  Company Number: None

PATIENT
  Age: 84 Year
  Sex: Female

DRUGS (11)
  1. ERIVEDGE [Suspect]
     Active Substance: VISMODEGIB
     Indication: Basal cell carcinoma
     Dosage: 150MG ONCE A DAY
     Route: 050
     Dates: start: 20240206, end: 20240722
  2. PREGABALIN [Concomitant]
     Active Substance: PREGABALIN
  3. PRAVASTATIN SODIUM [Concomitant]
     Active Substance: PRAVASTATIN SODIUM
  4. Azilsartan medoxomilo + Clorotalidona [Concomitant]
  5. ALPRAZOLAM [Concomitant]
     Active Substance: ALPRAZOLAM
  6. OMEPRAZOLE [Concomitant]
     Active Substance: OMEPRAZOLE
  7. ASPIRIN [Concomitant]
     Active Substance: ASPIRIN
  8. MIRTAZAPINE [Concomitant]
     Active Substance: MIRTAZAPINE
  9. METFORMIN [Concomitant]
     Active Substance: METFORMIN HYDROCHLORIDE
  10. LISINOPRIL [Concomitant]
     Active Substance: LISINOPRIL
  11. NEBIVOLOL [Concomitant]
     Active Substance: NEBIVOLOL

REACTIONS (3)
  - Cholecystitis acute [Recovered/Resolved]
  - Pancreatitis acute [Recovered/Resolved]
  - Dysgeusia [Recovered/Resolved]

NARRATIVE: CASE EVENT DATE: 20240318
